FAERS Safety Report 15403539 (Version 2)
Quarter: 2018Q3

REPORT INFORMATION
  Report Type: Spontaneous
  Country: GR (occurrence: GR)
  Receive Date: 20180919
  Receipt Date: 20180924
  Transmission Date: 20181010
  Serious: Yes (Other)
  Sender: FDA-Public Use
  Company Number: GR-SA-2018SA257660

PATIENT
  Age: 53 Year
  Sex: Female

DRUGS (4)
  1. ISONIAZID. [Concomitant]
     Active Substance: ISONIAZID
     Indication: TUBERCULOSIS
     Dosage: 300 MG, QD
  2. ETHIONAMIDE [Concomitant]
     Active Substance: ETHIONAMIDE
     Indication: TUBERCULOSIS
     Dosage: 800 MG
  3. RIFAMPICIN [Suspect]
     Active Substance: RIFAMPIN
     Indication: TUBERCULOSIS
     Dosage: 450 MG, QD
     Route: 065
  4. PYRAZINAMIDE. [Concomitant]
     Active Substance: PYRAZINAMIDE
     Indication: TUBERCULOSIS
     Dosage: 1000 MG, QD

REACTIONS (7)
  - Fanconi syndrome acquired [Unknown]
  - Renal tubular acidosis [Unknown]
  - Fatigue [Unknown]
  - Glycosuria [Unknown]
  - Hypokalaemia [Unknown]
  - Muscular weakness [Unknown]
  - Albuminuria [Unknown]
